FAERS Safety Report 6376826-4 (Version None)
Quarter: 2009Q3

REPORT INFORMATION
  Report Type: 
  Country: None (occurrence: None)
  Receive Date: 20090925
  Receipt Date: 20090922
  Transmission Date: 20100115
  Serious: Yes (Hospitalization)
  Sender: FDA-Public Use
  Company Number: FR-BRISTOL-MYERS SQUIBB COMPANY-14789440

PATIENT
  Age: 63 Year
  Sex: Male
  Weight: 95 kg

DRUGS (7)
  1. CISPLATIN [Suspect]
     Indication: NON-SMALL CELL LUNG CANCER
     Dosage: TAKEN TILL 24JUL2009 HELD ON 09SEP09
     Route: 042
     Dates: start: 20090522, end: 20090724
  2. PEMETREXED DISODIUM [Suspect]
     Indication: NON-SMALL CELL LUNG CANCER
     Dosage: TAKEN 24JUL2009 (64DAYS);20AUG2009 HELD FROM 09SEP2009
     Route: 042
     Dates: start: 20090522, end: 20090724
  3. BEST SUPPORTIVE CARE [Suspect]
     Indication: NON-SMALL CELL LUNG CANCER
     Dates: start: 20090820
  4. FOLIC ACID [Concomitant]
     Dates: start: 20090515
  5. VITAMIN B-12 [Concomitant]
     Dates: start: 20090515
  6. CORTANCYL [Concomitant]
     Dates: start: 20090521, end: 20090821
  7. SPIRIVA [Concomitant]

REACTIONS (1)
  - LUNG DISORDER [None]
